FAERS Safety Report 8692336 (Version 3)
Quarter: 2012Q4

REPORT INFORMATION
  Report Type: 
  Country: GB (occurrence: GB)
  Receive Date: 20120730
  Receipt Date: 20121122
  Transmission Date: 20130627
  Serious: Yes (Hospitalization, Other)
  Sender: FDA-Public Use
  Company Number: PHFR2012GB004198

PATIENT
  Age: 36 Year
  Sex: Male

DRUGS (3)
  1. CLOZARIL [Suspect]
     Indication: SCHIZOPHRENIA
     Dosage: 150 mg, daily
     Route: 048
     Dates: start: 20120704, end: 20120728
  2. LORAZEPAM [Concomitant]
     Indication: AGITATION
     Dosage: max 4 mg daily PRN
     Route: 048
  3. HALOPERIDOL [Concomitant]
     Indication: AGGRESSION
     Dosage: max 15 mg/day, PRN

REACTIONS (10)
  - Viral myocarditis [Unknown]
  - C-reactive protein increased [Unknown]
  - Lethargy [Unknown]
  - Tachycardia [Unknown]
  - Troponin I increased [Unknown]
  - Blood creatine phosphokinase increased [Unknown]
  - Pyrexia [Unknown]
  - Pericardial effusion [Recovered/Resolved]
  - Alanine aminotransferase increased [Recovered/Resolved]
  - Blood alkaline phosphatase increased [Recovered/Resolved]
